FAERS Safety Report 7771579-7 (Version None)
Quarter: 2011Q3

REPORT INFORMATION
  Report Type: 
  Country: None (occurrence: None)
  Receive Date: 20110922
  Receipt Date: 20110110
  Transmission Date: 20111222
  Serious: Yes (Other)
  Sender: FDA-Public Use
  Company Number: US-ASTRAZENECA-2011SE02200

PATIENT
  Age: 21 Year
  Sex: Male
  Weight: 63.5 kg

DRUGS (4)
  1. TOPAMAX [Concomitant]
     Dosage: TID
  2. SEROQUEL [Suspect]
     Indication: WEIGHT INCREASED
     Route: 048
  3. KEPPRA [Concomitant]
     Dosage: TID
  4. DEPAKOTE [Concomitant]
     Dosage: TID

REACTIONS (4)
  - FEELING ABNORMAL [None]
  - UNRESPONSIVE TO STIMULI [None]
  - CONFUSIONAL STATE [None]
  - CONVULSION [None]
